FAERS Safety Report 4357955-3 (Version None)
Quarter: 2004Q2

REPORT INFORMATION
  Report Type: 
  Country: None (occurrence: None)
  Receive Date: 20040510
  Receipt Date: 20040422
  Transmission Date: 20050107
  Serious: No
  Sender: FDA-Public Use
  Company Number: A01200401920

PATIENT
  Age: 49 Year
  Sex: Male

DRUGS (2)
  1. XATRAL - (ALFUZOSIN) - TABLET PR - 10 MG [Suspect]
     Indication: BENIGN PROSTATIC HYPERPLASIA
     Dosage: 10 MG OD
     Route: 048
     Dates: start: 20040215, end: 20040222
  2. INSULIN [Concomitant]

REACTIONS (2)
  - BLOOD GLUCOSE INCREASED [None]
  - DRUG INTERACTION [None]
